FAERS Safety Report 16835082 (Version 1)
Quarter: 2019Q3

REPORT INFORMATION
  Report Type: Spontaneous
  Country: GB (occurrence: GB)
  Receive Date: 20190920
  Receipt Date: 20190920
  Transmission Date: 20191005
  Serious: Yes (Other)
  Sender: FDA-Public Use
  Company Number: GB-MYLANLABS-2019M1087829

PATIENT
  Age: 59 Year
  Sex: Male

DRUGS (1)
  1. GABAPENTIN. [Suspect]
     Active Substance: GABAPENTIN
     Indication: NEURALGIA
     Dosage: 2700 MILLIGRAM, QD
     Route: 048
     Dates: end: 20090408

REACTIONS (5)
  - Dysarthria [Recovered/Resolved]
  - Withdrawal syndrome [Unknown]
  - Disorientation [Recovered/Resolved]
  - Product dose omission [Unknown]
  - Agitation [Unknown]

NARRATIVE: CASE EVENT DATE: 20190408
